FAERS Safety Report 20587500 (Version 6)
Quarter: 2022Q3

REPORT INFORMATION
  Report Type: Report from Study
  Country: US (occurrence: US)
  Receive Date: 20220314
  Receipt Date: 20220917
  Transmission Date: 20221026
  Serious: No
  Sender: FDA-Public Use
  Company Number: US-NOVARTISTESTPH-NVSC2022US057312

PATIENT
  Sex: Female
  Weight: 65.306 kg

DRUGS (7)
  1. TREPROSTINIL [Suspect]
     Active Substance: TREPROSTINIL
     Indication: Pulmonary arterial hypertension
     Dosage: UNK UNK, CONT  (17 NG/KG/MIN)
     Route: 042
     Dates: start: 20220127
  2. TREPROSTINIL [Suspect]
     Active Substance: TREPROSTINIL
     Dosage: UNK UNK, CONT (19 NG/KG/MIN)
     Route: 042
     Dates: start: 20220127
  3. TREPROSTINIL [Suspect]
     Active Substance: TREPROSTINIL
     Dosage: UNK UNK, CONT (27 NG/KG/MIN)
     Route: 042
     Dates: start: 20220127
  4. TREPROSTINIL [Suspect]
     Active Substance: TREPROSTINIL
     Dosage: UNK, CONT (30 NG/KG/ MI N)
     Route: 042
     Dates: start: 20220127
  5. TADALAFIL [Concomitant]
     Active Substance: TADALAFIL
     Indication: Product used for unknown indication
     Dosage: UNK
     Route: 065
  6. AMBRISENTAN [Concomitant]
     Active Substance: AMBRISENTAN
     Indication: Product used for unknown indication
     Dosage: UNK
     Route: 065
  7. UPTRAVI [Concomitant]
     Active Substance: SELEXIPAG
     Indication: Product used for unknown indication
     Dosage: UNK
     Route: 065

REACTIONS (8)
  - Injection site pruritus [Unknown]
  - Scratch [Unknown]
  - Suture related complication [Unknown]
  - Weight increased [Unknown]
  - Skin irritation [Unknown]
  - Eye swelling [Unknown]
  - Seasonal allergy [Unknown]
  - COVID-19 [Unknown]
